APPROVED DRUG PRODUCT: ARYNTA
Active Ingredient: LISDEXAMFETAMINE DIMESYLATE
Strength: 10MG/ML
Dosage Form/Route: SOLUTION;ORAL
Application: N219847 | Product #001
Applicant: AZURITY PHARMACEUTICALS INC
Approved: Jun 16, 2025 | RLD: Yes | RS: Yes | Type: RX

PATENTS:
Patent 12433859 | Expires: Apr 16, 2040
Patent 11576878 | Expires: Aug 30, 2040